FAERS Safety Report 12369474 (Version 1)
Quarter: 2016Q2

REPORT INFORMATION
  Report Type: Spontaneous
  Country: US (occurrence: None)
  Receive Date: 20160513
  Receipt Date: 20160513
  Transmission Date: 20160815
  Serious: Yes (Hospitalization, Disabling)
  Sender: FDA-Public Use
  Company Number: None

PATIENT
  Age: 28 Year
  Sex: Female
  Weight: 58.97 kg

DRUGS (3)
  1. CIPRO [Suspect]
     Active Substance: CIPROFLOXACIN HYDROCHLORIDE
     Indication: KIDNEY INFECTION
     Route: 048
     Dates: start: 20151003, end: 20151007
  2. ZYRTEC [Concomitant]
     Active Substance: CETIRIZINE HYDROCHLORIDE
  3. VITAMIN D [Concomitant]
     Active Substance: CHOLECALCIFEROL

REACTIONS (29)
  - Dysarthria [None]
  - Muscle twitching [None]
  - Photopsia [None]
  - Feeling drunk [None]
  - Ear pain [None]
  - Hypoaesthesia [None]
  - Burning sensation [None]
  - Tinnitus [None]
  - Sinus disorder [None]
  - Palpitations [None]
  - Muscle tightness [None]
  - Dry eye [None]
  - Nasal dryness [None]
  - Suicidal ideation [None]
  - Cognitive disorder [None]
  - Muscular weakness [None]
  - Musculoskeletal stiffness [None]
  - Gait disturbance [None]
  - Toxicity to various agents [None]
  - Eye disorder [None]
  - Lymphadenopathy [None]
  - Asthenia [None]
  - Insomnia [None]
  - Depression [None]
  - Abasia [None]
  - Limb discomfort [None]
  - Pain [None]
  - Mental disorder [None]
  - Oropharyngeal pain [None]

NARRATIVE: CASE EVENT DATE: 20151005
